FAERS Safety Report 16623470 (Version 2)
Quarter: 2019Q3

REPORT INFORMATION
  Report Type: Spontaneous
  Country: US (occurrence: US)
  Receive Date: 20190724
  Receipt Date: 20190806
  Transmission Date: 20191004
  Serious: Yes (Other)
  Sender: FDA-Public Use
  Company Number: US-SA-2019SA196907

PATIENT
  Age: 59 Year
  Sex: Male

DRUGS (8)
  1. HYDROXYCHLOROQUINE [Suspect]
     Active Substance: HYDROXYCHLOROQUINE
     Indication: CHRONIC ACTINIC DERMATITIS
     Route: 048
  2. AZATHIOPRINE. [Suspect]
     Active Substance: AZATHIOPRINE
     Indication: CHRONIC ACTINIC DERMATITIS
     Route: 048
  3. TACROLIMUS. [Concomitant]
     Active Substance: TACROLIMUS
     Indication: CHRONIC ACTINIC DERMATITIS
     Route: 061
  4. PREDNISONE. [Concomitant]
     Active Substance: PREDNISONE
     Indication: CHRONIC ACTINIC DERMATITIS
  5. CYCLOSPORINE. [Concomitant]
     Active Substance: CYCLOSPORINE
     Indication: CHRONIC ACTINIC DERMATITIS
     Route: 048
  6. MYCOPHENOLATE MOFETIL. [Suspect]
     Active Substance: MYCOPHENOLATE MOFETIL
     Indication: CHRONIC ACTINIC DERMATITIS
     Route: 048
  7. DUPILUMAB [Suspect]
     Active Substance: DUPILUMAB
     Indication: CHRONIC ACTINIC DERMATITIS
     Dosage: UNK
     Dates: start: 201808
  8. THALIDOMIDE [Concomitant]
     Active Substance: THALIDOMIDE
     Indication: CHRONIC ACTINIC DERMATITIS
     Route: 048

REACTIONS (2)
  - Off label use [Unknown]
  - Leukopenia [Unknown]
